FAERS Safety Report 5371492-9 (Version None)
Quarter: 2007Q2

REPORT INFORMATION
  Report Type: 
  Country: None (occurrence: None)
  Receive Date: 20070622
  Receipt Date: 20070608
  Transmission Date: 20071010
  Serious: Yes (Hospitalization, Other)
  Sender: FDA-Public Use
  Company Number: POMP-11058

PATIENT
  Sex: Male
  Weight: 5.9 kg

DRUGS (3)
  1. MYOZYME [Suspect]
     Indication: GLYCOGEN STORAGE DISEASE TYPE II
     Dosage: 10 MG/KG Q2WKS IV
     Route: 042
     Dates: start: 20070604
  2. MYOZYME [Suspect]
     Indication: GLYCOGEN STORAGE DISEASE TYPE II
     Dosage: 20 MG/KG Q2WKS IV
     Route: 042
     Dates: start: 20070224, end: 20070501
  3. METHOTREXATE [Concomitant]

REACTIONS (15)
  - ALBUMINURIA [None]
  - BRONCHIAL HYPERREACTIVITY [None]
  - CANDIDIASIS [None]
  - CENTRAL LINE INFECTION [None]
  - EOSINOPHILIA [None]
  - HAEMATURIA [None]
  - INFLUENZA [None]
  - PROTEINURIA [None]
  - PYREXIA [None]
  - RESPIRATORY SYNCYTIAL VIRUS INFECTION [None]
  - RESPIRATORY TRACT INFECTION [None]
  - STAPHYLOCOCCAL INFECTION [None]
  - TACHYCARDIA [None]
  - TACHYPNOEA [None]
  - THROMBOCYTOPENIA [None]
